FAERS Safety Report 10136891 (Version 1)
Quarter: 2014Q2

REPORT INFORMATION
  Report Type: Spontaneous
  Country: US (occurrence: US)
  Receive Date: 20140429
  Receipt Date: 20140429
  Transmission Date: 20141212
  Serious: No
  Sender: FDA-Public Use
  Company Number: US-ABBVIE-14P-163-1216745-00

PATIENT
  Sex: Male

DRUGS (2)
  1. ANDROGEL [Suspect]
     Indication: PRODUCT USED FOR UNKNOWN INDICATION
     Dosage: 2 PUMPS DAILY
     Route: 061
  2. ANDROGEL [Suspect]
     Dosage: 4 PUMPS DAILY
     Route: 061

REACTIONS (4)
  - Hyperaesthesia [Recovering/Resolving]
  - Breast swelling [Recovering/Resolving]
  - Blood testosterone decreased [Unknown]
  - Local swelling [Recovering/Resolving]
